FAERS Safety Report 6892691-0 (Version None)
Quarter: 2010Q3

REPORT INFORMATION
  Report Type: 
  Country: None (occurrence: None)
  Receive Date: 20100731
  Receipt Date: 20080214
  Transmission Date: 20110219
  Serious: No
  Sender: FDA-Public Use
  Company Number: US-PFIZER INC-2007092410

PATIENT
  Sex: Male
  Weight: 79.4 kg

DRUGS (7)
  1. NEURONTIN [Suspect]
     Indication: HYPOAESTHESIA
     Dosage: 5 EVERY 1 DAYS
  2. NEURONTIN [Suspect]
     Indication: MUSCULOSKELETAL STIFFNESS
  3. GABAPENTIN [Suspect]
     Indication: HYPOAESTHESIA
  4. GABAPENTIN [Suspect]
     Indication: MUSCULOSKELETAL STIFFNESS
  5. METHADONE HCL [Suspect]
     Indication: PAIN
     Dosage: 2-3 TIMES DAILY AS NECESSERY
  6. TRAZODONE [Concomitant]
     Dosage: AT BEDTIME
  7. ROXICODONE [Concomitant]

REACTIONS (1)
  - DRUG INEFFECTIVE [None]
